FAERS Safety Report 16403922 (Version 1)
Quarter: 2019Q2

REPORT INFORMATION
  Report Type: Spontaneous
  Country: IT (occurrence: IT)
  Receive Date: 20190607
  Receipt Date: 20190607
  Transmission Date: 20190711
  Serious: Yes (Hospitalization)
  Sender: FDA-Public Use
  Company Number: IT-009507513-1906ITA000900

PATIENT
  Age: 50 Year
  Sex: Female

DRUGS (6)
  1. LASIX [Suspect]
     Active Substance: FUROSEMIDE
     Indication: OEDEMA
     Dosage: 25 UNK TWICE A WEEK
     Route: 065
     Dates: start: 20130501
  2. MYCOPHENOLATE MOFETIL. [Suspect]
     Active Substance: MYCOPHENOLATE MOFETIL
     Indication: INTERSTITIAL LUNG DISEASE
     Dosage: 500 UNK, QID
     Route: 065
     Dates: start: 20130501
  3. EUTIROX [Concomitant]
     Active Substance: LEVOTHYROXINE SODIUM
     Indication: THYROID DISORDER
     Dosage: 75 UNK, QD
     Dates: start: 20130301
  4. LORTAAN 50 MG COMPRESSE RIVESTITE CON FILM [Suspect]
     Active Substance: LOSARTAN POTASSIUM
     Indication: PROPHYLAXIS
     Dosage: 50 UNK, QD
     Route: 065
     Dates: start: 20130501
  5. RAXAR [Concomitant]
     Active Substance: GREPAFLOXACIN HYDROCHLORIDE
     Indication: GASTRIC DISORDER
     Dosage: 10 UNK, QD
     Dates: start: 20180301
  6. TRACLEER [Suspect]
     Active Substance: BOSENTAN
     Indication: SCLERODERMA ASSOCIATED DIGITAL ULCER
     Dosage: 125 MG, BID
     Route: 048
     Dates: start: 20131201

REACTIONS (1)
  - Subdural haematoma [Recovered/Resolved]

NARRATIVE: CASE EVENT DATE: 20190127
